FAERS Safety Report 5264757-2 (Version None)
Quarter: 2007Q1

REPORT INFORMATION
  Report Type: 
  Country: None (occurrence: None)
  Receive Date: 20070313
  Receipt Date: 20070226
  Transmission Date: 20070707
  Serious: Yes (Other)
  Sender: FDA-Public Use
  Company Number: PHEH2006US14980

PATIENT
  Age: 79 Year
  Sex: Male
  Weight: 76.643 kg

DRUGS (14)
  1. GLEEVEC [Suspect]
     Indication: CHRONIC MYELOID LEUKAEMIA
     Dosage: UNK, QD
     Route: 048
     Dates: start: 20010605, end: 20060901
  2. GLEEVEC [Suspect]
     Dosage: 200 MG, QD
     Route: 048
     Dates: start: 20060901, end: 20060919
  3. GLEEVEC [Suspect]
     Dosage: 100 MG, QID
     Route: 048
     Dates: end: 20061201
  4. GLEEVEC [Suspect]
     Dosage: 300 MG, QD
     Route: 048
     Dates: start: 20060919, end: 20061221
  5. GLEEVEC [Suspect]
     Dosage: UNK, QD
     Route: 048
     Dates: start: 20070116, end: 20070130
  6. COREG [Concomitant]
     Dosage: 25 MG, BID
     Route: 048
  7. ALLOPURINOL [Concomitant]
     Dosage: 300 MG, QD
     Route: 048
  8. FLOMAX [Concomitant]
     Dosage: 0.5 MG, BID
     Route: 048
  9. DIGITEK [Concomitant]
     Dosage: 0.125 MG, QOD
     Route: 048
  10. DIOVAN [Concomitant]
     Dosage: 160 MG, QD
     Route: 048
  11. ASPIRIN [Concomitant]
     Dosage: 81 MG, QD
     Route: 048
  12. IRON [Concomitant]
     Dosage: 325 MG, QD
     Route: 048
  13. AMOXICILLIN [Concomitant]
     Indication: DENTAL TREATMENT
     Dosage: 500 MG, PRN
     Route: 048
  14. PROTONIX [Concomitant]
     Dosage: 40 MG, QD
     Route: 048

REACTIONS (8)
  - AMNESIA [None]
  - ASTHENIA [None]
  - CONFUSIONAL STATE [None]
  - DEMENTIA ALZHEIMER'S TYPE [None]
  - DIARRHOEA [None]
  - DISORIENTATION [None]
  - HAEMATOCHEZIA [None]
  - MENTAL STATUS CHANGES [None]
